FAERS Safety Report 5592845-X (Version None)
Quarter: 2008Q1

REPORT INFORMATION
  Report Type: 
  Country: None (occurrence: None)
  Receive Date: 20080116
  Receipt Date: 20080108
  Transmission Date: 20080703
  Serious: Yes (Hospitalization)
  Sender: FDA-Public Use
  Company Number: PHRM2008FR00604

PATIENT
  Age: 81 Year
  Sex: Female
  Weight: 63 kg

DRUGS (2)
  1. EXELON [Suspect]
     Indication: DEMENTIA ALZHEIMER'S TYPE
     Dosage: UNK MG, UNK
     Route: 048
  2. EXELON [Suspect]
     Dosage: 3 MG, BID
     Route: 048

REACTIONS (1)
  - PHLEBITIS [None]
